FAERS Safety Report 21651542 (Version 1)
Quarter: 2022Q4

REPORT INFORMATION
  Report Type: Spontaneous
  Country: US (occurrence: None)
  Receive Date: 20221123
  Receipt Date: 20221123
  Transmission Date: 20230113
  Serious: Yes (Hospitalization)
  Sender: FDA-Public Use
  Company Number: None

PATIENT
  Age: 68 Year
  Sex: Male

DRUGS (12)
  1. OPSUMIT [Suspect]
     Active Substance: MACITENTAN
     Indication: Pulmonary hypertension
     Dosage: FREQUENCY : DAILY;?
     Route: 048
     Dates: start: 20200914
  2. SILDENAFIL [Concomitant]
     Active Substance: SILDENAFIL
  3. DIGOXIN [Concomitant]
     Active Substance: DIGOXIN
  4. OMEPRAZOLE [Concomitant]
     Active Substance: OMEPRAZOLE
  5. SIMVASTATIN [Concomitant]
     Active Substance: SIMVASTATIN
  6. COLCHICINE [Concomitant]
     Active Substance: COLCHICINE
  7. ALBUTEROL SULFATE [Concomitant]
     Active Substance: ALBUTEROL SULFATE
  8. NORCO [Concomitant]
     Active Substance: ACETAMINOPHEN\HYDROCODONE BITARTRATE
  9. DUONEB INHL NEB SOLN [Concomitant]
  10. TORSEMIDE [Concomitant]
     Active Substance: TORSEMIDE
  11. METOPROLOL [Concomitant]
     Active Substance: METOPROLOL
  12. CULTURELLE [Concomitant]
     Active Substance: LACTOBACILLUS RHAMNOSUS

REACTIONS (3)
  - Cardiac failure congestive [None]
  - Atypical pneumonia [None]
  - Acute respiratory failure [None]

NARRATIVE: CASE EVENT DATE: 20221117
